FAERS Safety Report 7304735-2 (Version None)
Quarter: 2011Q1

REPORT INFORMATION
  Report Type: 
  Country: None (occurrence: None)
  Receive Date: 20110222
  Receipt Date: 20110215
  Transmission Date: 20110831
  Serious: No
  Sender: FDA-Public Use
  Company Number: US-PFIZER INC-2010065759

PATIENT
  Sex: Female
  Weight: 79.8 kg

DRUGS (5)
  1. PRILOSEC [Concomitant]
     Indication: GASTROOESOPHAGEAL REFLUX DISEASE
  2. PRILOSEC [Concomitant]
     Indication: GASTRIC DISORDER
     Dosage: UNK
  3. KLONOPIN [Concomitant]
     Indication: DEPRESSION
     Dosage: 2 MG, UNK
  4. LYRICA [Suspect]
     Indication: NEURALGIA
     Dosage: 150 MG/DAY
     Route: 048
     Dates: start: 20100406
  5. LEXAPRO [Concomitant]
     Indication: DEPRESSION
     Dosage: 20 MG, UNK

REACTIONS (6)
  - DECREASED APPETITE [None]
  - SKIN DEPIGMENTATION [None]
  - WEIGHT DECREASED [None]
  - BLOOD GLUCOSE INCREASED [None]
  - SOMNOLENCE [None]
  - ABDOMINAL DISTENSION [None]
